FAERS Safety Report 9079398 (Version 1)
Quarter: 2013Q1

REPORT INFORMATION
  Report Type: Report from Study
  Country: US (occurrence: US)
  Receive Date: 20130130
  Receipt Date: 20130130
  Transmission Date: 20140127
  Serious: Yes (Hospitalization)
  Sender: FDA-Public Use
  Company Number: US-ABBOTT-12P-163-0968107-00

PATIENT
  Age: 55 None
  Sex: Female

DRUGS (1)
  1. HUMIRA 40 MG/0.8 ML PEN [Suspect]
     Indication: RHEUMATOID ARTHRITIS
     Route: 058
     Dates: start: 201003

REACTIONS (16)
  - Painful respiration [Not Recovered/Not Resolved]
  - Pneumonia [Unknown]
  - Pain [Not Recovered/Not Resolved]
  - Pyrexia [Unknown]
  - Local swelling [Not Recovered/Not Resolved]
  - Chest pain [Not Recovered/Not Resolved]
  - Painful respiration [Unknown]
  - Pleurisy [Unknown]
  - Musculoskeletal chest pain [Unknown]
  - Pain in extremity [Not Recovered/Not Resolved]
  - Pain [Not Recovered/Not Resolved]
  - Oedema peripheral [Not Recovered/Not Resolved]
  - Arthralgia [Not Recovered/Not Resolved]
  - Joint range of motion decreased [Not Recovered/Not Resolved]
  - Malaise [Not Recovered/Not Resolved]
  - Chest pain [Not Recovered/Not Resolved]
